FAERS Safety Report 10051698 (Version 1)
Quarter: 2014Q2

REPORT INFORMATION
  Report Type: Spontaneous
  Country: GB (occurrence: GB)
  Receive Date: 20140401
  Receipt Date: 20140401
  Transmission Date: 20141212
  Serious: Yes (Hospitalization, Other)
  Sender: FDA-Public Use
  Company Number: GB-009507513-1403GBR013358

PATIENT
  Age: 64 Year
  Sex: Female

DRUGS (11)
  1. FOSAMAX [Suspect]
     Dosage: 70 MG, QW
     Route: 048
     Dates: start: 200711, end: 201403
  2. ASPIRIN [Concomitant]
  3. ATORVASTATIN [Concomitant]
  4. BISOPROLOL [Concomitant]
  5. CANDESARTAN [Concomitant]
  6. ACETAMINOPHEN (+) CODEINE PHOSPHATE [Concomitant]
  7. INDAPAMIDE [Concomitant]
  8. INFLIXIMAB [Concomitant]
  9. LANSOPRAZOLE [Concomitant]
  10. METHOTREXATE [Concomitant]
  11. NAPROXEN [Concomitant]

REACTIONS (1)
  - Atypical fracture [Unknown]
